FAERS Safety Report 12143076 (Version 2)
Quarter: 2016Q1

REPORT INFORMATION
  Report Type: Spontaneous
  Country: IT (occurrence: IT)
  Receive Date: 20160303
  Receipt Date: 20160330
  Transmission Date: 20160526
  Serious: Yes (Other)
  Sender: FDA-Public Use
  Company Number: IT-AMGEN-ITASP2016024254

PATIENT
  Age: 83 Year
  Sex: Female

DRUGS (1)
  1. PROLIA [Suspect]
     Active Substance: DENOSUMAB
     Indication: OSTEOPOROSIS POSTMENOPAUSAL
     Dosage: 60 MG, Q6MO (TWICE IN A YEAR)
     Route: 058
     Dates: start: 201309

REACTIONS (5)
  - Osteonecrosis of jaw [Recovered/Resolved]
  - Intentional product misuse [Unknown]
  - Device failure [Unknown]
  - Dental prosthesis user [Unknown]
  - Pain [Unknown]

NARRATIVE: CASE EVENT DATE: 201507
